FAERS Safety Report 7945047-3 (Version None)
Quarter: 2011Q4

REPORT INFORMATION
  Report Type: 
  Country: None (occurrence: None)
  Receive Date: 20111129
  Receipt Date: 20111122
  Transmission Date: 20120403
  Serious: Yes (Death, Other)
  Sender: FDA-Public Use
  Company Number: IT-B.I. PHARMACEUTICALS,INC./RIDGEFIELD-2011-EU-00598GD

PATIENT
  Age: 71 Year
  Sex: Male

DRUGS (13)
  1. ACETAMINOPHEN [Suspect]
  2. LISINOPRIL [Concomitant]
  3. ATENOLOL [Concomitant]
  4. SALMETEROL [Concomitant]
  5. TAMSULOSIN HCL [Concomitant]
  6. IPRATROPIUM BROMIDE [Suspect]
  7. CEFTRIAXONE [Suspect]
  8. MOXIFLOXACIN [Suspect]
  9. TRIAMCINOLONE [Concomitant]
  10. LIDOCAINE [Suspect]
  11. WARFARIN SODIUM [Concomitant]
  12. ALBUTEROL SULFATE AUTOHALER [Suspect]
  13. HYDROCHLOROTHIAZIDE [Concomitant]

REACTIONS (5)
  - ELECTROCARDIOGRAM QT PROLONGED [None]
  - ELECTROCARDIOGRAM QT SHORTENED [None]
  - CARDIAC ARREST [None]
  - ATRIAL FIBRILLATION [None]
  - TACHYCARDIA [None]
